FAERS Safety Report 4962906-4 (Version None)
Quarter: 2006Q2

REPORT INFORMATION
  Report Type: 
  Country: None (occurrence: None)
  Receive Date: 20060405
  Receipt Date: 20060130
  Transmission Date: 20061013
  Serious: Yes (Other)
  Sender: FDA-Public Use
  Company Number: 2006UW03391

PATIENT
  Age: 53 Year
  Sex: Male
  Weight: 93.2 kg

DRUGS (6)
  1. LOSEC [Suspect]
     Indication: DUODENOGASTRIC REFLUX
     Route: 048
     Dates: start: 20040712
  2. CELEXA [Concomitant]
     Indication: ANXIETY
     Route: 048
     Dates: start: 20050520
  3. LOPRESSOR [Concomitant]
     Indication: HEART RATE
     Route: 048
     Dates: start: 20040615
  4. COZAAR [Concomitant]
     Indication: BLOOD PRESSURE
     Route: 048
     Dates: start: 20040730
  5. AMITRIPTYLINE [Concomitant]
     Dosage: PAIN MANAGEMENT
     Route: 048
     Dates: start: 20041223
  6. EZETROL [Concomitant]
     Indication: BLOOD CHOLESTEROL
     Route: 048
     Dates: start: 20050710, end: 20051129

REACTIONS (1)
  - BLOOD CREATINE PHOSPHOKINASE INCREASED [None]
